FAERS Safety Report 18016793 (Version 5)
Quarter: 2022Q3

REPORT INFORMATION
  Report Type: Report from Study
  Country: US (occurrence: US)
  Receive Date: 20200713
  Receipt Date: 20220713
  Transmission Date: 20221027
  Serious: No
  Sender: FDA-Public Use
  Company Number: US-VANDA PHARMACEUTICALS, INC-2020TASUS003990

PATIENT
  Sex: Female

DRUGS (4)
  1. HETLIOZ [Suspect]
     Active Substance: TASIMELTEON
     Indication: Non-24-hour sleep-wake disorder
     Dosage: 20 MG, QD
     Route: 048
     Dates: start: 20161108
  2. HETLIOZ [Suspect]
     Active Substance: TASIMELTEON
     Dosage: 20 MG, QD
     Route: 048
     Dates: start: 20161118
  3. HETLIOZ [Suspect]
     Active Substance: TASIMELTEON
     Dosage: 20 MILLIGRAM, QD
     Route: 048
     Dates: start: 2020, end: 202108
  4. FLUOXETINE [Concomitant]
     Active Substance: FLUOXETINE HYDROCHLORIDE
     Indication: Product used for unknown indication

REACTIONS (7)
  - Night sweats [Not Recovered/Not Resolved]
  - Weight fluctuation [Unknown]
  - Poor quality sleep [Unknown]
  - Anxiety [Unknown]
  - Middle insomnia [Not Recovered/Not Resolved]
  - Therapeutic product effect decreased [Unknown]
  - Product supply issue [Not Recovered/Not Resolved]
